FAERS Safety Report 9483841 (Version 1)
Quarter: 2013Q3

REPORT INFORMATION
  Report Type: Report from Study
  Country: MX (occurrence: MX)
  Receive Date: 20130828
  Receipt Date: 20130828
  Transmission Date: 20140515
  Serious: Yes (Other)
  Sender: FDA-Public Use
  Company Number: PHHY2013MX091669

PATIENT
  Age: 12 Year
  Sex: Male

DRUGS (5)
  1. RITALIN LA [Suspect]
     Indication: AUTISM
     Dosage: 1 DF, QD
     Route: 048
     Dates: start: 20111005
  2. RISPERDAL [Concomitant]
     Indication: DISTURBANCE IN ATTENTION
     Dosage: 2 UKN, QD
     Dates: start: 2009
  3. RISPERDAL [Concomitant]
     Indication: IRRITABILITY
  4. CONCERTA [Concomitant]
     Indication: DISTURBANCE IN ATTENTION
     Dosage: EVERY THREE MONTHS FOR A PERIOD OF TWO OR THREE DAYS
     Dates: start: 2008
  5. CONCERTA [Concomitant]
     Indication: IRRITABILITY

REACTIONS (3)
  - Bronchial disorder [Recovered/Resolved]
  - Cough [Recovered/Resolved]
  - Bronchial injury [Recovered/Resolved]
